FAERS Safety Report 8166674 (Version 2)
Quarter: 2014Q1

REPORT INFORMATION
  Report Type: Spontaneous
  Country: US (occurrence: US)
  Receive Date: 20111003
  Receipt Date: 20140123
  Transmission Date: 20141002
  Serious: Yes (Life-Threatening, Other)
  Sender: FDA-Public Use
  Company Number: US-BAYER-2011-093589

PATIENT
  Sex: Female
  Weight: 72.56 kg

DRUGS (3)
  1. YASMIN [Suspect]
  2. OCELLA [Suspect]
  3. YAZ [Suspect]

REACTIONS (8)
  - Gallbladder disorder [Unknown]
  - Biliary dyskinesia [None]
  - Organ failure [Unknown]
  - Cholecystitis [Unknown]
  - Pain [Unknown]
  - General physical health deterioration [Unknown]
  - Anxiety [Unknown]
  - Anhedonia [Unknown]
